FAERS Safety Report 5756919-2 (Version None)
Quarter: 2008Q2

REPORT INFORMATION
  Report Type: 
  Country: None (occurrence: None)
  Receive Date: 20080603
  Receipt Date: 20080602
  Transmission Date: 20081010
  Serious: Yes (Hospitalization)
  Sender: FDA-Public Use
  Company Number: A0730702A

PATIENT

DRUGS (1)
  1. ALLI [Suspect]
     Indication: DRUG USE FOR UNKNOWN INDICATION

REACTIONS (4)
  - PHARYNGEAL DISORDER [None]
  - POST PROCEDURAL COMPLICATION [None]
  - TONSILLECTOMY [None]
  - WEIGHT DECREASED [None]
